FAERS Safety Report 6241085-X (Version None)
Quarter: 2009Q2

REPORT INFORMATION
  Report Type: 
  Country: None (occurrence: None)
  Receive Date: 20090619
  Receipt Date: 20090619
  Transmission Date: 20091009
  Serious: No
  Sender: FDA-Public Use
  Company Number: None

PATIENT
  Age: 23 Year
  Sex: Female
  Weight: 47.6277 kg

DRUGS (1)
  1. NASALCROM [Suspect]
     Indication: ALLERGY PROPHYLAXIS
     Dosage: 5.2 MG CROMOLYN SODIUM 2 SPRAYS PER DAY NASAL
     Route: 045
     Dates: start: 20090415, end: 20090515

REACTIONS (4)
  - FATIGUE [None]
  - INSOMNIA [None]
  - MENTAL DISORDER [None]
  - PALPITATIONS [None]
